FAERS Safety Report 8092576-0 (Version None)
Quarter: 2012Q1

REPORT INFORMATION
  Report Type: 
  Country: None (occurrence: None)
  Receive Date: 20120128
  Receipt Date: 20110829
  Transmission Date: 20120608
  Serious: No
  Sender: FDA-Public Use
  Company Number: US-ABBOTT-11P-163-0850050-00

PATIENT
  Age: 36 Year
  Sex: Female

DRUGS (4)
  1. HUMIRA [Suspect]
     Dates: start: 20110829
  2. HUMIRA [Suspect]
     Dates: start: 20110822, end: 20110822
  3. HUMIRA [Suspect]
     Indication: CROHN'S DISEASE
     Dates: start: 20110808, end: 20110808
  4. HUMIRA [Suspect]
     Dates: start: 20110809, end: 20110809

REACTIONS (1)
  - MEDICATION ERROR [None]
